FAERS Safety Report 11574933 (Version 1)
Quarter: 2015Q3

REPORT INFORMATION
  Report Type: Spontaneous
  Country: US (occurrence: US)
  Receive Date: 20150930
  Receipt Date: 20150930
  Transmission Date: 20151125
  Serious: No
  Sender: FDA-Public Use
  Company Number: US-SUN PHARMACEUTICAL INDUSTRIES LTD-2015US-94038

PATIENT
  Sex: Female

DRUGS (1)
  1. LORATADINE. [Suspect]
     Active Substance: LORATADINE
     Indication: PRODUCT USED FOR UNKNOWN INDICATION
     Dosage: UNK
     Route: 065
     Dates: start: 20150210

REACTIONS (5)
  - Nausea [Unknown]
  - Chills [Unknown]
  - Insomnia [Unknown]
  - Paraesthesia [Unknown]
  - Cluster headache [Unknown]

NARRATIVE: CASE EVENT DATE: 20150210
